FAERS Safety Report 4713280-X (Version None)
Quarter: 2005Q3

REPORT INFORMATION
  Report Type: 
  Country: None (occurrence: None)
  Receive Date: 20050701
  Receipt Date: 20050111
  Transmission Date: 20060218
  Serious: Yes (Hospitalization)
  Sender: FDA-Public Use
  Company Number: US-2005-000305

PATIENT
  Age: 25 Year
  Sex: Female
  Weight: 162.4 kg

DRUGS (5)
  1. YASMIN [Suspect]
     Indication: MENSTRUATION IRREGULAR
     Dosage: 1 TAB(S), 1X/DAY, ORAL
     Route: 048
     Dates: start: 20030815, end: 20031216
  2. ZOLOFT [Concomitant]
  3. ATENOLOL [Concomitant]
  4. METFORMIN [Concomitant]
  5. RANITIDINE [Concomitant]

REACTIONS (1)
  - PULMONARY EMBOLISM [None]
